FAERS Safety Report 7086189-7 (Version None)
Quarter: 2010Q4

REPORT INFORMATION
  Report Type: 
  Country: None (occurrence: None)
  Receive Date: 20101105
  Receipt Date: 20101101
  Transmission Date: 20110411
  Serious: Yes (Hospitalization, Other)
  Sender: FDA-Public Use
  Company Number: DE-ABBOTT-10P-062-0617494-00

PATIENT
  Age: 70 Year
  Sex: Male

DRUGS (16)
  1. ERGENYL [Interacting]
     Indication: SCHIZOAFFECTIVE DISORDER
     Route: 048
     Dates: end: 20090519
  2. ERGENYL [Interacting]
     Indication: MANIA
     Route: 048
     Dates: start: 20090526, end: 20090526
  3. ERGENYL [Interacting]
     Dosage: 450 MG DAILY
     Route: 048
     Dates: start: 20090527, end: 20090528
  4. ERGENYL [Interacting]
     Dosage: 600 MG DAILY
     Route: 048
     Dates: start: 20090529, end: 20090603
  5. ERGENYL [Interacting]
     Dosage: 900 MG DAILY
     Route: 048
     Dates: start: 20090604, end: 20090605
  6. EUNERPAN [Interacting]
     Indication: PRODUCT USED FOR UNKNOWN INDICATION
     Route: 048
     Dates: end: 20090524
  7. EUNERPAN [Interacting]
     Dosage: 100MG TAB+ 50MG TAB DAILY
     Route: 048
     Dates: start: 20090525, end: 20090604
  8. EUNERPAN [Interacting]
     Route: 048
     Dates: start: 20090605, end: 20090609
  9. AKINETON [Suspect]
     Indication: PRODUCT USED FOR UNKNOWN INDICATION
     Dosage: 4 MG DAILY
     Route: 048
  10. QUILONUM [Interacting]
     Indication: PRODUCT USED FOR UNKNOWN INDICATION
     Dosage: 900 MG DAILY
     Route: 048
     Dates: end: 20090519
  11. HALDOL [Interacting]
     Indication: PRODUCT USED FOR UNKNOWN INDICATION
     Route: 030
  12. FUROSEMID [Interacting]
     Indication: PRODUCT USED FOR UNKNOWN INDICATION
     Route: 048
     Dates: start: 20090430, end: 20090519
  13. HYDROCHLOROTHIAZIDE [Interacting]
     Indication: PRODUCT USED FOR UNKNOWN INDICATION
     Route: 048
     Dates: end: 20090519
  14. ALLOPURINOL [Suspect]
     Indication: PRODUCT USED FOR UNKNOWN INDICATION
     Dosage: 100 MG DAILY
     Route: 048
     Dates: end: 20090519
  15. ENALAPRIL HCT [Interacting]
     Indication: PRODUCT USED FOR UNKNOWN INDICATION
     Dosage: 10 + 25 MG/DAY
     Route: 048
     Dates: end: 20090519
  16. TORASEMIDE [Concomitant]
     Indication: PRODUCT USED FOR UNKNOWN INDICATION
     Dosage: 20 MG DAILY
     Dates: start: 20090519, end: 20090519

REACTIONS (11)
  - ATRIOVENTRICULAR BLOCK COMPLETE [None]
  - BRADYCARDIA [None]
  - COR PULMONALE [None]
  - DILATATION VENTRICULAR [None]
  - DRUG INTERACTION [None]
  - DRUG TOXICITY [None]
  - GENERAL PHYSICAL HEALTH DETERIORATION [None]
  - OEDEMA [None]
  - PULMONARY HYPERTENSION [None]
  - RENAL FAILURE [None]
  - RIGHT ATRIAL DILATATION [None]
